FAERS Safety Report 13702529 (Version 1)
Quarter: 2017Q2

REPORT INFORMATION
  Report Type: Spontaneous
  Country: None (occurrence: US)
  Receive Date: 20170629
  Receipt Date: 20170629
  Transmission Date: 20170830
  Serious: No
  Sender: FDA-Public Use
  Company Number: US-MEDAC PHARMA, INC.-2022679

PATIENT
  Age: 54 Year
  Sex: Female
  Weight: 65 kg

DRUGS (7)
  1. RASUVO [Suspect]
     Active Substance: METHOTREXATE SODIUM
     Indication: RHEUMATOID ARTHRITIS
     Route: 058
     Dates: start: 2016
  2. PAXIL [Concomitant]
     Active Substance: PAROXETINE HYDROCHLORIDE
  3. NEXIUM [Concomitant]
     Active Substance: ESOMEPRAZOLE MAGNESIUM
  4. TOPROL XL [Concomitant]
     Active Substance: METOPROLOL SUCCINATE
  5. FOLIC ACID. [Concomitant]
     Active Substance: FOLIC ACID
  6. ESZOPICLONE. [Concomitant]
     Active Substance: ESZOPICLONE
  7. VITAMIN D [Concomitant]
     Active Substance: CHOLECALCIFEROL

REACTIONS (2)
  - Injection site bruising [Unknown]
  - Injection site discomfort [Unknown]

NARRATIVE: CASE EVENT DATE: 20170530
